FAERS Safety Report 18205696 (Version 3)
Quarter: 2020Q3

REPORT INFORMATION
  Report Type: Report from Study
  Country: FR (occurrence: FR)
  Receive Date: 20200828
  Receipt Date: 20200909
  Transmission Date: 20201103
  Serious: No
  Sender: FDA-Public Use
  Company Number: FR-ROCHE-2664201

PATIENT
  Sex: Female
  Weight: 102 kg

DRUGS (3)
  1. ATEZOLIZUMAB. [Suspect]
     Active Substance: ATEZOLIZUMAB
     Indication: B-CELL LYMPHOMA
     Dosage: ON DAY 2 OF EACH 21?DAY CYCLE DURING 18 MONTHS?LAST ADMINISTRATION BEFORE SAE: 11/JUL/2019
     Route: 042
     Dates: start: 20190523
  2. OBINUTUZUMAB. [Suspect]
     Active Substance: OBINUTUZUMAB
     Indication: B-CELL LYMPHOMA
     Dosage: ON DAY 1, DAY 8 AND DAY 15 OF CYCLE 1 AND EACH DAY 1 FROM CYCLE 2 TO CYCLE 8?LAST ADMINISTRATION BEF
     Route: 042
  3. VENETOCLAX. [Suspect]
     Active Substance: VENETOCLAX
     Indication: B-CELL LYMPHOMA
     Dosage: DAY 8 OF CYCLE 1, EVERY DAY DURING 18 MONTHS?LAST ADMINISTRATION BEFORE SAE: 15/JUL/2019
     Route: 065
     Dates: start: 20190529, end: 20190715

REACTIONS (1)
  - Infusion related reaction [Unknown]
